FAERS Safety Report 5877021-5 (Version None)
Quarter: 2008Q3

REPORT INFORMATION
  Report Type: 
  Country: None (occurrence: None)
  Receive Date: 20080910
  Receipt Date: 20080902
  Transmission Date: 20090109
  Serious: Yes (Other)
  Sender: FDA-Public Use
  Company Number: PHHY2008CO19412

PATIENT

DRUGS (3)
  1. ACLASTA [Suspect]
     Indication: OSTEOPOROSIS
     Dosage: 1 INFUSION ANNUAL
     Route: 042
     Dates: start: 20080801
  2. WARFARIN SODIUM [Concomitant]
     Indication: ANTICOAGULANT THERAPY
  3. MEDROL [Concomitant]

REACTIONS (4)
  - ABDOMINAL PAIN UPPER [None]
  - MYALGIA [None]
  - PYREXIA [None]
  - RECTAL HAEMORRHAGE [None]
